FAERS Safety Report 5754011-4 (Version None)
Quarter: 2008Q2

REPORT INFORMATION
  Report Type: 
  Country: None (occurrence: None)
  Receive Date: 20080527
  Receipt Date: 20080527
  Transmission Date: 20081010
  Serious: Yes (Other)
  Sender: FDA-Public Use
  Company Number: None

PATIENT
  Age: 59 Year
  Sex: Female
  Weight: 83.9154 kg

DRUGS (1)
  1. AVELOX [Suspect]
     Indication: INFECTION
     Dosage: 1 ONCE A DAY PO
     Route: 048
     Dates: start: 20080521, end: 20080522

REACTIONS (6)
  - ANXIETY [None]
  - BURNING SENSATION [None]
  - DRY MOUTH [None]
  - INSOMNIA [None]
  - NIGHTMARE [None]
  - PARAESTHESIA [None]
